FAERS Safety Report 4644640-3 (Version None)
Quarter: 2005Q2

REPORT INFORMATION
  Report Type: 
  Country: None (occurrence: None)
  Receive Date: 20050425
  Receipt Date: 20050425
  Transmission Date: 20051028
  Serious: Yes (Other)
  Sender: FDA-Public Use
  Company Number: None

PATIENT
  Sex: Female
  Weight: 62.5964 kg

DRUGS (1)
  1. TERAZOL 3 [Suspect]
     Indication: VAGINAL INFECTION
     Dosage: 1   EVERY OTHER DA   VAGINAL
     Route: 067
     Dates: start: 20050414, end: 20050420

REACTIONS (3)
  - CHILLS [None]
  - INFLUENZA LIKE ILLNESS [None]
  - PYREXIA [None]
